FAERS Safety Report 7133211-5 (Version None)
Quarter: 2010Q4

REPORT INFORMATION
  Report Type: 
  Country: None (occurrence: None)
  Receive Date: 20101202
  Receipt Date: 20101122
  Transmission Date: 20110411
  Serious: Yes (Other)
  Sender: FDA-Public Use
  Company Number: US-JNJFOC-20101108783

PATIENT
  Sex: Male
  Weight: 12.7 kg

DRUGS (8)
  1. INFLIXIMAB, RECOMBINANT [Suspect]
     Indication: CROHN'S DISEASE
     Route: 042
  2. PROBIOTICS [Concomitant]
  3. FERROUS SULFATE [Concomitant]
  4. MULTI-VITAMINS [Concomitant]
  5. DEXTRAN INJ [Concomitant]
  6. MESALAMINE [Concomitant]
  7. PREDNISONE [Concomitant]
  8. ANTIBIOTICS [Concomitant]

REACTIONS (1)
  - HAEMORRHAGIC ANAEMIA [None]
